FAERS Safety Report 13556313 (Version 1)
Quarter: 2017Q2

REPORT INFORMATION
  Report Type: Spontaneous
  Country: US (occurrence: US)
  Receive Date: 20170517
  Receipt Date: 20170517
  Transmission Date: 20170830
  Serious: Yes (Other)
  Sender: FDA-Public Use
  Company Number: US-SA-2017SA011701

PATIENT
  Age: 79 Year
  Sex: Female
  Weight: 73.5 kg

DRUGS (9)
  1. SOLOSTAR [Concomitant]
     Active Substance: DEVICE
     Indication: DIABETES MELLITUS
     Dates: start: 20161129, end: 20170112
  2. DONEPEZIL. [Concomitant]
     Active Substance: DONEPEZIL
  3. LEVEMIR [Concomitant]
     Active Substance: INSULIN DETEMIR
     Dosage: DOSE:25 UNIT(S)
  4. FUROSEMIDE. [Concomitant]
     Active Substance: FUROSEMIDE
  5. TOUJEO [Suspect]
     Active Substance: INSULIN GLARGINE
     Indication: DIABETES MELLITUS
     Dosage: DOSE:30 UNIT(S)
     Route: 065
     Dates: start: 20161129, end: 20170112
  6. ASA [Concomitant]
     Active Substance: ASPIRIN
  7. ATENOLOL. [Concomitant]
     Active Substance: ATENOLOL
  8. LEVEMIR [Concomitant]
     Active Substance: INSULIN DETEMIR
  9. ATORVASTATIN [Concomitant]
     Active Substance: ATORVASTATIN

REACTIONS (1)
  - Hypoglycaemia [Recovered/Resolved]
